FAERS Safety Report 7275422-4 (Version None)
Quarter: 2011Q1

REPORT INFORMATION
  Report Type: 
  Country: None (occurrence: None)
  Receive Date: 20110202
  Receipt Date: 20110202
  Transmission Date: 20110831
  Serious: Yes (Other)
  Sender: FDA-Public Use
  Company Number: None

PATIENT
  Age: 61 Year
  Sex: Female
  Weight: 61.2356 kg

DRUGS (1)
  1. LEVAQUIN [Suspect]
     Dosage: 1 TAB QD PO   ONE DOSE
     Route: 048
     Dates: start: 20100215

REACTIONS (1)
  - TENDONITIS [None]
